FAERS Safety Report 8183698-4 (Version None)
Quarter: 2012Q1

REPORT INFORMATION
  Report Type: 
  Country: None (occurrence: None)
  Receive Date: 20120305
  Receipt Date: 20120229
  Transmission Date: 20120608
  Serious: Yes (Death)
  Sender: FDA-Public Use
  Company Number: PHEH2012US004852

PATIENT
  Sex: Female

DRUGS (12)
  1. FUROSEMIDE [Concomitant]
  2. MICRO-K [Concomitant]
  3. GLEEVEC [Suspect]
     Dosage: 300 MG DAILY
     Route: 048
  4. PRANDIN ^KUHN^ [Concomitant]
  5. NEXIUM [Concomitant]
  6. FERROUS SULFATE TAB [Concomitant]
  7. VITAMIN D [Concomitant]
  8. SIMVASTATIN [Concomitant]
  9. JANUVIA [Concomitant]
  10. GLYBURIDE [Concomitant]
  11. METOPROLOL SUCCINATE [Concomitant]
  12. VITAMIN B-12 [Concomitant]

REACTIONS (1)
  - DEATH [None]
